FAERS Safety Report 9035032 (Version 1)
Quarter: 2013Q1

REPORT INFORMATION
  Report Type: Report from Study
  Country: US (occurrence: US)
  Receive Date: 20130129
  Receipt Date: 20130129
  Transmission Date: 20140127
  Serious: No
  Sender: FDA-Public Use
  Company Number: US-ABBOTT-12P-163-0889016-00

PATIENT
  Age: 55 None
  Sex: Male
  Weight: 101.24 kg

DRUGS (4)
  1. HUMIRA 40 MG/0.8 ML PEN [Suspect]
     Indication: PSORIASIS
     Dates: start: 2010, end: 2010
  2. HUMIRA 40 MG/0.8 ML PEN [Suspect]
     Route: 058
     Dates: start: 201111
  3. PROPRANOLOL [Concomitant]
     Indication: HYPERTENSION
  4. UNKNOWN ANTI-ANXIETY MEDICATION [Concomitant]
     Indication: ANXIETY

REACTIONS (4)
  - Unevaluable event [Recovering/Resolving]
  - Cough [Recovering/Resolving]
  - Nasopharyngitis [Recovering/Resolving]
  - Psoriasis [Not Recovered/Not Resolved]
